FAERS Safety Report 23957850 (Version 1)
Quarter: 2024Q2

REPORT INFORMATION
  Report Type: Spontaneous
  Country: PT (occurrence: PT)
  Receive Date: 20240610
  Receipt Date: 20240610
  Transmission Date: 20240715
  Serious: Yes (Other)
  Sender: FDA-Public Use
  Company Number: PT-BAYER-2024A080403

PATIENT
  Age: 63 Year
  Sex: Male

DRUGS (4)
  1. SORAFENIB [Suspect]
     Active Substance: SORAFENIB
     Indication: Acute leukaemia
  2. FLUDARABINE [Suspect]
     Active Substance: FLUDARABINE PHOSPHATE
  3. CYTARABINE [Concomitant]
     Active Substance: CYTARABINE
  4. IDARUBICIN [Concomitant]
     Active Substance: IDARUBICIN

REACTIONS (2)
  - Immune reconstitution inflammatory syndrome associated tuberculosis [None]
  - Off label use [None]
